FAERS Safety Report 4362996-6 (Version None)
Quarter: 2004Q2

REPORT INFORMATION
  Report Type: 
  Country: None (occurrence: None)
  Receive Date: 20040518
  Receipt Date: 20040505
  Transmission Date: 20050107
  Serious: No
  Sender: FDA-Public Use
  Company Number: 04P-056-0259615-00

PATIENT
  Age: 48 Year
  Sex: Male

DRUGS (7)
  1. DEPAKINE CHRONO TABLETS (SODIUM VALPROATE) (SODIUM VALPROATE) (SODIUM [Suspect]
     Indication: EPILEPSY
     Dosage: SEE IMAGE PER ORAL
     Route: 048
     Dates: start: 20000510, end: 20040101
  2. DEPAKINE CHRONO TABLETS (SODIUM VALPROATE) (SODIUM VALPROATE) (SODIUM [Suspect]
     Indication: EPILEPSY
     Dosage: SEE IMAGE PER ORAL
     Route: 048
     Dates: start: 20040101
  3. CARBAMAZEPINE [Concomitant]
  4. DIAZEPAM [Concomitant]
  5. ALIMEMAZINE TARTRATE [Concomitant]
  6. FENOFIBRATE [Concomitant]
  7. OMEPRAZOLE [Concomitant]

REACTIONS (15)
  - ASPARTATE AMINOTRANSFERASE INCREASED [None]
  - ASTHENIA [None]
  - BLOOD CREATINE PHOSPHOKINASE INCREASED [None]
  - BLOOD LACTATE DEHYDROGENASE INCREASED [None]
  - C-REACTIVE PROTEIN INCREASED [None]
  - CONFUSIONAL STATE [None]
  - CONVULSION [None]
  - DYSPHAGIA [None]
  - ELECTROENCEPHALOGRAM ABNORMAL [None]
  - FALL [None]
  - GAIT DISTURBANCE [None]
  - GAMMA-GLUTAMYLTRANSFERASE INCREASED [None]
  - HEMIPARESIS [None]
  - HYPERREFLEXIA [None]
  - HYPOTONIA [None]
